FAERS Safety Report 9471487 (Version 1)
Quarter: 2013Q3

REPORT INFORMATION
  Report Type: Spontaneous
  Country: DE (occurrence: None)
  Receive Date: 20130819
  Receipt Date: 20130819
  Transmission Date: 20140515
  Serious: Yes (Hospitalization)
  Sender: FDA-Public Use
  Company Number: GER/GER/13/0030695

PATIENT
  Age: 95 Year
  Sex: Male
  Weight: 65 kg

DRUGS (2)
  1. SIMVABETA 20 MG FILMTABLETTEN (SIMVASTATIN) [Suspect]
     Indication: PRODUCT USED FOR UNKNOWN INDICATION
     Dosage: 20 MG, 1 IN 1 TOAL, ORAL
     Route: 048
     Dates: start: 20130708, end: 20130708
  2. SIMVASTATIN [Suspect]
     Indication: PRODUCT USED FOR UNKNOWN INDICATION
     Dosage: 1 IN 1 TOTAL, ORAL
     Route: 048
     Dates: start: 20130708, end: 20130708

REACTIONS (2)
  - Overdose [None]
  - Malaise [None]
